FAERS Safety Report 18935564 (Version 1)
Quarter: 2021Q1

REPORT INFORMATION
  Report Type: Spontaneous
  Country: CA (occurrence: CA)
  Receive Date: 20210225
  Receipt Date: 20210225
  Transmission Date: 20210420
  Serious: Yes (Hospitalization)
  Sender: FDA-Public Use
  Company Number: CA-TEVA-2021-CA-1882410

PATIENT
  Age: 4 Year
  Sex: Female
  Weight: 3 kg

DRUGS (4)
  1. VENLAFAXINE XR [Suspect]
     Active Substance: VENLAFAXINE HYDROCHLORIDE
     Indication: DEPRESSION
     Dosage: 112.5 MILLIGRAM DAILY; CAPSULE, EXTENDED RELEASE
  2. TERBUTALINE [Concomitant]
     Active Substance: TERBUTALINE
  3. BUDESONIDE. [Concomitant]
     Active Substance: BUDESONIDE
  4. ENOXAPARIN [Concomitant]
     Active Substance: ENOXAPARIN

REACTIONS (3)
  - Drug withdrawal syndrome neonatal [Unknown]
  - Tremor [Unknown]
  - Maternal exposure during pregnancy [Unknown]
